FAERS Safety Report 24547364 (Version 1)
Quarter: 2024Q4

REPORT INFORMATION
  Report Type: Spontaneous
  Country: US (occurrence: US)
  Receive Date: 20241025
  Receipt Date: 20241025
  Transmission Date: 20250115
  Serious: No
  Sender: ABBVIE
  Company Number: US-ABBVIE-5975790

PATIENT
  Sex: Male

DRUGS (2)
  1. HUMIRA [Suspect]
     Active Substance: ADALIMUMAB
     Indication: Product used for unknown indication
     Route: 058
  2. COSENTYX [Suspect]
     Active Substance: SECUKINUMAB
     Indication: Product used for unknown indication
     Dosage: ON COSENTYX FOR APPROXIMATELY 2 YEARS NO MORE THAN 3- YEARS
     Route: 065

REACTIONS (4)
  - Arthritis [Unknown]
  - Blood cholesterol increased [Unknown]
  - Bruxism [Unknown]
  - Pain in jaw [Unknown]
